FAERS Safety Report 9691530 (Version 3)
Quarter: 2016Q1

REPORT INFORMATION
  Report Type: Spontaneous
  Country: US (occurrence: US)
  Receive Date: 20131115
  Receipt Date: 20160122
  Transmission Date: 20160526
  Serious: Yes (Hospitalization, Other)
  Sender: FDA-Public Use
  Company Number: DZ-ASTRAZENECA-2013SE82417

PATIENT
  Age: 59 Year
  Sex: Male
  Weight: 70.3 kg

DRUGS (20)
  1. ZOLADEX [Suspect]
     Active Substance: GOSERELIN ACETATE
     Indication: PROSTATIC SPECIFIC ANTIGEN INCREASED
     Route: 058
     Dates: start: 1996, end: 2009
  2. BICALUTAMIDE. [Suspect]
     Active Substance: BICALUTAMIDE
     Indication: PROSTATE CANCER
     Route: 048
  3. LEUPROLIDE [Suspect]
     Active Substance: LEUPROLIDE
     Route: 065
     Dates: start: 2009
  4. SIMVASTATIN. [Concomitant]
     Active Substance: SIMVASTATIN
     Indication: BLOOD CHOLESTEROL INCREASED
     Route: 048
  5. COMBIVENT [Concomitant]
     Active Substance: ALBUTEROL SULFATE\IPRATROPIUM BROMIDE
     Dosage: 20 MG. 100 MCG DAILY
     Route: 055
     Dates: start: 2013
  6. HYDROCHLOROTHIAZIDE. [Concomitant]
     Active Substance: HYDROCHLOROTHIAZIDE
     Indication: POLLAKIURIA
     Route: 048
     Dates: start: 2011
  7. VITAMIN D [Concomitant]
     Active Substance: CHOLECALCIFEROL
     Indication: BONE DENSITY DECREASED
     Route: 048
     Dates: start: 2010
  8. ALBUTERAL SULFATE [Concomitant]
     Indication: CHRONIC OBSTRUCTIVE PULMONARY DISEASE
     Dosage: PRN
     Route: 055
     Dates: start: 2006
  9. ADVAIR HFA [Concomitant]
     Active Substance: FLUTICASONE PROPIONATE\SALMETEROL XINAFOATE
     Dosage: 250 50 BID
     Route: 055
     Dates: start: 2008, end: 2010
  10. ADVAIR HFA [Concomitant]
     Active Substance: FLUTICASONE PROPIONATE\SALMETEROL XINAFOATE
     Dosage: 250 50 BID
     Route: 055
     Dates: start: 2010, end: 2011
  11. OXYGEN. [Concomitant]
     Active Substance: OXYGEN
     Indication: CHRONIC OBSTRUCTIVE PULMONARY DISEASE
     Dosage: 3 LITERS CONT, OUTSIDE OF HOME
     Route: 045
     Dates: start: 2005
  12. BETAMETHASONE. [Suspect]
     Active Substance: BETAMETHASONE
     Route: 065
  13. OXYGEN. [Concomitant]
     Active Substance: OXYGEN
     Indication: CHRONIC OBSTRUCTIVE PULMONARY DISEASE
     Dosage: 2.5 LITERS CONT, AT HOME
     Route: 045
     Dates: start: 2005
  14. ADVAIR HFA [Concomitant]
     Active Substance: FLUTICASONE PROPIONATE\SALMETEROL XINAFOATE
     Dosage: 250 50 BID
     Route: 055
     Dates: start: 2011
  15. ASPIRIN. [Concomitant]
     Active Substance: ASPIRIN
     Indication: CARDIAC DISORDER
     Route: 048
     Dates: start: 2008
  16. ZOLADEX [Suspect]
     Active Substance: GOSERELIN ACETATE
     Indication: PROSTATE CANCER
     Route: 058
     Dates: start: 1996, end: 2009
  17. ZOLADEX [Suspect]
     Active Substance: GOSERELIN ACETATE
     Indication: PROSTATIC SPECIFIC ANTIGEN INCREASED
     Route: 058
     Dates: start: 20130106
  18. ZOLADEX [Suspect]
     Active Substance: GOSERELIN ACETATE
     Indication: PROSTATE CANCER
     Route: 058
     Dates: start: 20130106
  19. LISINOPRIL. [Suspect]
     Active Substance: LISINOPRIL
     Indication: HYPERTENSION
     Route: 048
     Dates: start: 2009
  20. COMBIVENT [Concomitant]
     Active Substance: ALBUTEROL SULFATE\IPRATROPIUM BROMIDE
     Dosage: 20MG. 100 MCG Q6H
     Route: 055

REACTIONS (20)
  - Throat tightness [Recovering/Resolving]
  - Intentional product misuse [Unknown]
  - Dyspnoea [Recovered/Resolved]
  - Malignant neoplasm progression [Not Recovered/Not Resolved]
  - Delusion [Not Recovered/Not Resolved]
  - Feeling abnormal [Unknown]
  - Drug administration error [Unknown]
  - Sleep disorder due to general medical condition, insomnia type [Recovering/Resolving]
  - Galactorrhoea [Unknown]
  - Product quality issue [Unknown]
  - Diverticulitis [Not Recovered/Not Resolved]
  - Iron deficiency [Not Recovered/Not Resolved]
  - Insomnia [Unknown]
  - Therapy cessation [Recovered/Resolved]
  - Off label use [Not Recovered/Not Resolved]
  - Underdose [Unknown]
  - Malaise [Recovered/Resolved]
  - Muscle spasms [Recovered/Resolved]
  - Hypertension [Not Recovered/Not Resolved]
  - Drug hypersensitivity [Unknown]

NARRATIVE: CASE EVENT DATE: 1996
